FAERS Safety Report 5131641-4 (Version None)
Quarter: 2006Q4

REPORT INFORMATION
  Report Type: 
  Country: None (occurrence: None)
  Receive Date: 20061020
  Receipt Date: 20061011
  Transmission Date: 20070319
  Serious: Yes (Death)
  Sender: FDA-Public Use
  Company Number: US-JNJFOC-20060202472

PATIENT
  Sex: Male
  Weight: 108.86 kg

DRUGS (2)
  1. DURAGESIC-100 [Suspect]
  2. DURAGESIC-100 [Suspect]
     Indication: DRUG USE FOR UNKNOWN INDICATION

REACTIONS (9)
  - CARDIOVASCULAR DISORDER [None]
  - DEVICE FAILURE [None]
  - DRUG ABUSER [None]
  - HYPERTENSION [None]
  - LETHARGY [None]
  - OVERDOSE [None]
  - PHARMACEUTICAL PRODUCT COMPLAINT [None]
  - PULMONARY OEDEMA [None]
  - VENTRICULAR HYPERTROPHY [None]
